FAERS Safety Report 8454113-8 (Version None)
Quarter: 2012Q2

REPORT INFORMATION
  Report Type: 
  Country: None (occurrence: None)
  Receive Date: 20120620
  Receipt Date: 20120614
  Transmission Date: 20120825
  Serious: No
  Sender: FDA-Public Use
  Company Number: US-PFIZER INC-2012144492

PATIENT

DRUGS (2)
  1. PREMPRO [Suspect]
     Dosage: UNK
  2. EFFEXOR XR [Suspect]
     Dosage: UNK

REACTIONS (6)
  - POOR QUALITY SLEEP [None]
  - STRESS [None]
  - COUGH [None]
  - NASOPHARYNGITIS [None]
  - MALAISE [None]
  - HYPERSENSITIVITY [None]
